FAERS Safety Report 4887524-8 (Version None)
Quarter: 2006Q1

REPORT INFORMATION
  Report Type: 
  Country: None (occurrence: None)
  Receive Date: 20060123
  Receipt Date: 20060112
  Transmission Date: 20060701
  Serious: Yes (Hospitalization, Other)
  Sender: FDA-Public Use
  Company Number: US-JNJFOC-20050900447

PATIENT
  Sex: Female
  Weight: 72.58 kg

DRUGS (22)
  1. HALDOL [Suspect]
     Dosage: (DOSE: 0.5 MG TO 1 MG AT BEDTIME)
     Route: 048
     Dates: start: 20010101, end: 20010101
  2. HALDOL [Suspect]
     Indication: DEMENTIA
     Route: 048
     Dates: start: 20010101, end: 20010101
  3. RISPERDAL [Suspect]
     Indication: HALLUCINATION
     Route: 048
     Dates: start: 20010101, end: 20030101
  4. CELEXA [Suspect]
     Indication: DRUG USE FOR UNKNOWN INDICATION
     Route: 048
     Dates: end: 20030101
  5. ARICEPT [Concomitant]
     Route: 048
     Dates: end: 20030101
  6. ARICEPT [Concomitant]
     Route: 048
     Dates: end: 20030101
  7. LEXAPRO [Concomitant]
     Indication: DRUG USE FOR UNKNOWN INDICATION
     Route: 048
     Dates: start: 20030101, end: 20030101
  8. SYNTHROID [Concomitant]
     Route: 048
  9. LOPRESSOR [Concomitant]
     Route: 048
  10. EPOGEN [Concomitant]
     Dosage: (EVERY MONDAY AND FRIDAY)
     Route: 058
  11. PROTONIX [Concomitant]
     Route: 048
  12. VITAMIN E [Concomitant]
  13. PROMOD [Concomitant]
  14. FERROUS SULFATE TAB [Concomitant]
  15. MULTI-VITAMIN [Concomitant]
  16. MULTI-VITAMIN [Concomitant]
  17. MULTI-VITAMIN [Concomitant]
  18. MULTI-VITAMIN [Concomitant]
  19. MULTI-VITAMIN [Concomitant]
  20. MULTI-VITAMIN [Concomitant]
  21. MULTI-VITAMIN [Concomitant]
  22. MULTI-VITAMIN [Concomitant]

REACTIONS (12)
  - ABASIA [None]
  - APHASIA [None]
  - CONFUSIONAL STATE [None]
  - DIARRHOEA [None]
  - FALL [None]
  - HALLUCINATION [None]
  - MUSCLE RIGIDITY [None]
  - NORMAL PRESSURE HYDROCEPHALUS [None]
  - SOMNOLENCE [None]
  - TARDIVE DYSKINESIA [None]
  - VOMITING [None]
  - WEIGHT DECREASED [None]
